FAERS Safety Report 5280769-7 (Version None)
Quarter: 2007Q1

REPORT INFORMATION
  Report Type: 
  Country: None (occurrence: None)
  Receive Date: 20070329
  Receipt Date: 20070319
  Transmission Date: 20070707
  Serious: Yes (Other)
  Sender: FDA-Public Use
  Company Number: US-PFIZER INC-2007006695

PATIENT
  Sex: Female

DRUGS (3)
  1. GEODON [Suspect]
     Indication: BIPOLAR DISORDER
  2. LEXAPRO [Suspect]
     Indication: BIPOLAR DISORDER
     Dates: start: 20070115
  3. LEXAPRO [Suspect]
     Indication: DEPRESSION

REACTIONS (4)
  - DYSPHASIA [None]
  - EXTRAPYRAMIDAL DISORDER [None]
  - TARDIVE DYSKINESIA [None]
  - TORTICOLLIS [None]
